FAERS Safety Report 5154095-0 (Version None)
Quarter: 2006Q4

REPORT INFORMATION
  Report Type: 
  Country: None (occurrence: None)
  Receive Date: 20061120
  Receipt Date: 20061025
  Transmission Date: 20070319
  Serious: Yes (Other)
  Sender: FDA-Public Use
  Company Number: 2006AP05193

PATIENT
  Age: 32 Year
  Sex: Female
  Weight: 59 kg

DRUGS (3)
  1. ANAPEINE [Suspect]
     Indication: EPIDURAL ANAESTHESIA
     Route: 008
  2. MARCAINE [Suspect]
     Indication: SPINAL ANAESTHESIA
     Dosage: 2.4 ML
     Route: 037
     Dates: start: 20040801, end: 20040801
  3. MORPHINE [Concomitant]
     Indication: EPIDURAL ANAESTHESIA
     Route: 008

REACTIONS (2)
  - ADHESION [None]
  - ARACHNOIDITIS [None]
